FAERS Safety Report 9206618 (Version 2)
Quarter: 2014Q1

REPORT INFORMATION
  Report Type: Spontaneous
  Country: US (occurrence: US)
  Receive Date: 20130403
  Receipt Date: 20140109
  Transmission Date: 20141002
  Serious: Yes (Hospitalization)
  Sender: FDA-Public Use
  Company Number: US-BAYER-2013-041076

PATIENT
  Age: 34 Year
  Sex: Female

DRUGS (3)
  1. YASMIN [Suspect]
     Dosage: UNK
     Dates: start: 2007, end: 2011
  2. YAZ [Suspect]
     Dosage: UNK
     Dates: start: 2007, end: 2011
  3. OCELLA [Suspect]
     Dosage: UNK
     Dates: start: 2007, end: 2011

REACTIONS (8)
  - Cholelithiasis [None]
  - Cholecystitis chronic [None]
  - Injury [None]
  - Abdominal pain [None]
  - General physical health deterioration [None]
  - Emotional distress [None]
  - Anxiety [None]
  - Pain [None]
